FAERS Safety Report 9336397 (Version 1)
Quarter: 2013Q2

REPORT INFORMATION
  Report Type: Spontaneous
  Country: AU (occurrence: AU)
  Receive Date: 20130607
  Receipt Date: 20130607
  Transmission Date: 20140414
  Serious: Yes (Hospitalization, Other)
  Sender: FDA-Public Use
  Company Number: AU-009507513-1306AUS001629

PATIENT
  Age: 64 Year
  Sex: Male
  Weight: 147 kg

DRUGS (18)
  1. EZETIMIBE [Suspect]
     Route: 048
  2. CANDESARTAN CILEXETIL [Suspect]
     Route: 048
  3. CARVEDILOL [Suspect]
  4. COPLAVIX [Suspect]
  5. DIGOXIN [Suspect]
  6. INSPRA [Suspect]
     Indication: CARDIAC FAILURE
     Dosage: 50 MG, QD
     Dates: start: 20110227, end: 20130101
  7. FUROSEMIDE [Suspect]
     Route: 048
  8. GLICLAZIDE [Suspect]
  9. HYDRALAZINE HYDROCHLORIDE [Suspect]
  10. IVABRADINE [Suspect]
  11. LANTUS [Suspect]
  12. METFORMIN HYDROCHLORIDE [Suspect]
  13. NOVORAPID [Suspect]
  14. PERHEXILINE MALEATE [Suspect]
  15. PRAZOSIN HYDROCHLORIDE [Suspect]
  16. QUINAPRIL HYDROCHLORIDE [Suspect]
  17. ROSUVASTATIN CALCIUM [Suspect]
  18. SOTALOL HYDROCHLORIDE [Suspect]

REACTIONS (4)
  - Blood creatinine increased [Recovered/Resolved]
  - Renal failure acute [Recovered/Resolved]
  - Hypotension [Recovered/Resolved]
  - Presyncope [Recovered/Resolved]
